FAERS Safety Report 9067036 (Version 1)
Quarter: 2013Q1

REPORT INFORMATION
  Report Type: Spontaneous
  Country: RU (occurrence: RU)
  Receive Date: 20130214
  Receipt Date: 20130214
  Transmission Date: 20140127
  Serious: Yes (Hospitalization)
  Sender: FDA-Public Use
  Company Number: RU-ALEXION PHARMACEUTICALS INC.-A201300231

PATIENT
  Age: 2 None
  Sex: Female

DRUGS (6)
  1. SOLIRIS 300MG [Suspect]
     Indication: HAEMOLYTIC URAEMIC SYNDROME
     Dosage: 300 MG, QW
     Route: 042
     Dates: start: 20120610, end: 20120610
  2. SOLIRIS 300MG [Suspect]
     Dosage: 300 MG, TIW
     Route: 042
     Dates: start: 20120618, end: 20121106
  3. SOLIRIS 300MG [Suspect]
     Dosage: 300 MG, Q2W
     Route: 042
     Dates: start: 20121121, end: 20130122
  4. TRITACE [Concomitant]
     Indication: HYPERTENSION
     Route: 048
  5. FUROSEMID [Concomitant]
     Indication: HYPERTENSION
     Route: 048
  6. FUROSEMID [Concomitant]
     Indication: OEDEMA

REACTIONS (1)
  - Pneumonia [Not Recovered/Not Resolved]
